FAERS Safety Report 18722337 (Version 1)
Quarter: 2021Q1

REPORT INFORMATION
  Report Type: Spontaneous
  Country: US (occurrence: US)
  Receive Date: 20210111
  Receipt Date: 20210111
  Transmission Date: 20210419
  Serious: No
  Sender: FDA-Public Use
  Company Number: US-AUROBINDO-AUR-APL-2020-024239

PATIENT

DRUGS (1)
  1. OXYCODONE HYDROCHLORIDE TABLETS USP 5 MG [Suspect]
     Active Substance: OXYCODONE HYDROCHLORIDE
     Indication: PAIN
     Dosage: UNK
     Route: 065

REACTIONS (7)
  - Rash [Unknown]
  - Abdominal pain [Unknown]
  - Panic attack [Unknown]
  - Irritability [Unknown]
  - Pain [Unknown]
  - Drug ineffective [Unknown]
  - Confusional state [Unknown]
